FAERS Safety Report 7086862-0 (Version None)
Quarter: 2010Q4

REPORT INFORMATION
  Report Type: 
  Country: None (occurrence: None)
  Receive Date: 20101105
  Receipt Date: 20090810
  Transmission Date: 20110411
  Serious: Yes (Other)
  Sender: FDA-Public Use
  Company Number: US-AMGEN-USASP2009000012

PATIENT

DRUGS (1)
  1. NPLATE [Suspect]
     Indication: IDIOPATHIC THROMBOCYTOPENIC PURPURA
     Dosage: 10 A?G/KG, QWK
     Route: 058
     Dates: start: 20090421

REACTIONS (4)
  - CONTUSION [None]
  - DRUG EFFECT DECREASED [None]
  - PETECHIAE [None]
  - PLATELET COUNT DECREASED [None]
